FAERS Safety Report 10937177 (Version 2)
Quarter: 2015Q2

REPORT INFORMATION
  Report Type: Spontaneous
  Country: US (occurrence: US)
  Receive Date: 20150321
  Receipt Date: 20150525
  Transmission Date: 20150821
  Serious: No
  Sender: FDA-Public Use
  Company Number: US-JNJFOC-20130711444

PATIENT
  Sex: Female
  Weight: 77.11 kg

DRUGS (15)
  1. UNSPECIFIED GENERIC TOPIRAMATE [Suspect]
     Active Substance: TOPIRAMATE
     Indication: MIGRAINE PROPHYLAXIS
     Route: 048
  2. UNSPECIFIED GENERIC TOPIRAMATE [Suspect]
     Active Substance: TOPIRAMATE
     Indication: MIGRAINE PROPHYLAXIS
     Route: 048
  3. UNSPECIFIED GENERIC TOPIRAMATE [Suspect]
     Active Substance: TOPIRAMATE
     Indication: DEPRESSION
     Route: 048
  4. UNSPECIFIED GENERIC TOPIRAMATE [Suspect]
     Active Substance: TOPIRAMATE
     Indication: DEPRESSION
     Route: 048
  5. LOTENSIN [Concomitant]
     Active Substance: BENAZEPRIL HYDROCHLORIDE
     Indication: FLUID RETENTION
     Dosage: 10-12.5MG/TABLET/ONCE A DAY
     Route: 048
  6. LOTENSIN [Concomitant]
     Active Substance: BENAZEPRIL HYDROCHLORIDE
     Indication: HYPERTENSION
     Dosage: 10-12.5MG/TABLET/ONCE A DAY
     Route: 048
  7. UNSPECIFIED GENERIC TOPIRAMATE [Suspect]
     Active Substance: TOPIRAMATE
     Indication: POST-TRAUMATIC STRESS DISORDER
     Route: 048
  8. TRIAMTERENE AND HYDROCHLOROTHIAZIDE [Concomitant]
     Active Substance: HYDROCHLOROTHIAZIDE\TRIAMTERENE
     Indication: HYPERTENSION
     Dosage: 37.5-25 MG
     Route: 048
  9. DEXAMPHETAMINE SULPHATE [Concomitant]
     Indication: NARCOLEPSY
     Route: 048
  10. DEXAMPHETAMINE SULPHATE [Concomitant]
     Indication: ATTENTION DEFICIT/HYPERACTIVITY DISORDER
     Route: 048
  11. UNSPECIFIED GENERIC TOPIRAMATE [Suspect]
     Active Substance: TOPIRAMATE
     Indication: MIGRAINE PROPHYLAXIS
     Dosage: 25 MG TABLET
     Route: 048
  12. UNSPECIFIED GENERIC TOPIRAMATE [Suspect]
     Active Substance: TOPIRAMATE
     Indication: POST-TRAUMATIC STRESS DISORDER
     Dosage: 25 MG TABLET
     Route: 048
  13. UNSPECIFIED GENERIC TOPIRAMATE [Suspect]
     Active Substance: TOPIRAMATE
     Indication: POST-TRAUMATIC STRESS DISORDER
     Route: 048
  14. TRIAMTERENE AND HYDROCHLOROTHIAZIDE [Concomitant]
     Active Substance: HYDROCHLOROTHIAZIDE\TRIAMTERENE
     Indication: FLUID RETENTION
     Dosage: 37.5-25 MG
     Route: 048
  15. UNSPECIFIED GENERIC TOPIRAMATE [Suspect]
     Active Substance: TOPIRAMATE
     Indication: DEPRESSION
     Dosage: 25 MG TABLET
     Route: 048

REACTIONS (5)
  - Apathy [Not Recovered/Not Resolved]
  - Migraine [Recovered/Resolved]
  - Treatment noncompliance [Unknown]
  - Product use issue [Unknown]
  - Frustration [Not Recovered/Not Resolved]
